FAERS Safety Report 7506870-2 (Version None)
Quarter: 2011Q2

REPORT INFORMATION
  Report Type: 
  Country: None (occurrence: None)
  Receive Date: 20110526
  Receipt Date: 20110519
  Transmission Date: 20111010
  Serious: Yes (Other)
  Sender: FDA-Public Use
  Company Number: B0721834A

PATIENT
  Sex: Male

DRUGS (3)
  1. MELATONIN [Concomitant]
  2. MIRTAZAPINE [Concomitant]
  3. BUPROPION HYDROCHLORIDE [Suspect]
     Indication: DEPRESSION
     Route: 065
     Dates: start: 20110501

REACTIONS (1)
  - LIVER FUNCTION TEST ABNORMAL [None]
